FAERS Safety Report 10397071 (Version 1)
Quarter: 2014Q3

REPORT INFORMATION
  Report Type: Spontaneous
  Country: US (occurrence: None)
  Receive Date: 20140819
  Receipt Date: 20140819
  Transmission Date: 20150326
  Serious: Yes (Other)
  Sender: FDA-Public Use
  Company Number: None

PATIENT
  Age: 12 Year
  Sex: Female
  Weight: 72.58 kg

DRUGS (1)
  1. QNASL [Suspect]
     Active Substance: BECLOMETHASONE DIPROPIONATE
     Indication: MULTIPLE ALLERGIES
     Dosage: 2 SPRAYS, ONCE DAILY, NOSE
     Route: 045
     Dates: start: 20140611, end: 20140814

REACTIONS (3)
  - Headache [None]
  - Neck pain [None]
  - Pyrexia [None]

NARRATIVE: CASE EVENT DATE: 20140816
